FAERS Safety Report 8390493-X (Version None)
Quarter: 2012Q2

REPORT INFORMATION
  Report Type: 
  Country: None (occurrence: None)
  Receive Date: 20120529
  Receipt Date: 20120523
  Transmission Date: 20120825
  Serious: Yes (Other)
  Sender: FDA-Public Use
  Company Number: US-JNJFOC-20120517815

PATIENT
  Age: 63 Year
  Sex: Female
  Weight: 63.5 kg

DRUGS (9)
  1. CORGARD [Concomitant]
     Indication: HYPERTENSION
     Route: 065
  2. CHILDREN'S BENADRYL ALLERGY [Suspect]
     Indication: RHINORRHOEA
     Route: 048
     Dates: start: 20120509, end: 20120509
  3. CHILDREN'S BENADRYL ALLERGY [Suspect]
     Route: 048
     Dates: start: 20120418, end: 20120418
  4. CHILDREN'S BENADRYL ALLERGY [Suspect]
     Route: 048
     Dates: start: 20120418, end: 20120418
  5. CHILDREN'S BENADRYL ALLERGY [Suspect]
     Route: 048
     Dates: start: 20120419, end: 20120508
  6. CORGARD [Concomitant]
     Indication: TACHYCARDIA
     Route: 065
  7. CHILDREN'S BENADRYL ALLERGY [Suspect]
     Indication: PRURITUS
     Route: 048
     Dates: start: 20120419, end: 20120508
  8. CHILDREN'S BENADRYL ALLERGY [Suspect]
     Route: 048
     Dates: start: 20120509, end: 20120509
  9. KLONOPIN [Concomitant]
     Indication: TACHYCARDIA
     Route: 065

REACTIONS (5)
  - OFF LABEL USE [None]
  - HEART RATE IRREGULAR [None]
  - ABDOMINAL DISTENSION [None]
  - NAUSEA [None]
  - FLATULENCE [None]
